FAERS Safety Report 6422124-X (Version None)
Quarter: 2009Q4

REPORT INFORMATION
  Report Type: 
  Country: None (occurrence: None)
  Receive Date: 20091029
  Receipt Date: 20091029
  Transmission Date: 20100525
  Serious: No
  Sender: FDA-Public Use
  Company Number: None

PATIENT
  Sex: Female
  Weight: 70.5 kg

DRUGS (1)
  1. LEVOTHYROXINE SODIUM [Suspect]
     Indication: THYROIDECTOMY
     Dosage: 75MCG 1/DAY BY MOUTH
     Route: 048
     Dates: start: 20090929, end: 20091009

REACTIONS (6)
  - AMNESIA [None]
  - BLOOD THYROID STIMULATING HORMONE INCREASED [None]
  - COGNITIVE DISORDER [None]
  - DYSPHAGIA [None]
  - LETHARGY [None]
  - PRODUCT SUBSTITUTION ISSUE [None]
